FAERS Safety Report 10029175 (Version 1)
Quarter: 2014Q1

REPORT INFORMATION
  Report Type: Spontaneous
  Country: NL (occurrence: NL)
  Receive Date: 20140321
  Receipt Date: 20140321
  Transmission Date: 20141002
  Serious: Yes (Life-Threatening)
  Sender: FDA-Public Use
  Company Number: NL-MERCK-1403NLD010413

PATIENT
  Sex: Male

DRUGS (2)
  1. REMERON SOLTAB [Suspect]
     Indication: DEPRESSION
     Dosage: 30 MG, QD
     Route: 048
     Dates: start: 2012
  2. LYRICA [Concomitant]
     Dosage: 1 DF, UNK
     Route: 048
     Dates: start: 2008

REACTIONS (4)
  - Loss of libido [Not Recovered/Not Resolved]
  - Aggression [Unknown]
  - Suicidal ideation [Unknown]
  - Nightmare [Unknown]
